FAERS Safety Report 11931745 (Version 2)
Quarter: 2016Q1

REPORT INFORMATION
  Report Type: Spontaneous
  Country: JP (occurrence: JP)
  Receive Date: 20160120
  Receipt Date: 20160307
  Transmission Date: 20160526
  Serious: Yes (Death, Life-Threatening)
  Sender: FDA-Public Use
  Company Number: JP-GE HEALTHCARE MEDICAL DIAGNOSTICS-OMPQ-PR-1507S-1060

PATIENT
  Age: 84 Year
  Sex: Female
  Weight: 83 kg

DRUGS (11)
  1. MAGMITT [Concomitant]
     Active Substance: MAGNESIUM OXIDE
     Dates: start: 20130618, end: 20150630
  2. VESICARE [Concomitant]
     Active Substance: SOLIFENACIN SUCCINATE
     Dates: start: 20130820, end: 20150630
  3. TAKEPRON [Concomitant]
     Active Substance: LANSOPRAZOLE
     Dates: start: 20130415, end: 20150630
  4. OMNIPAQUE [Suspect]
     Active Substance: IOHEXOL
     Indication: PRODUCT USED FOR UNKNOWN INDICATION
     Route: 042
     Dates: start: 20150630, end: 20150630
  5. LIVACT [Concomitant]
     Active Substance: AMINO ACIDS
     Dates: start: 20130618, end: 20150630
  6. ITOROL [Concomitant]
     Active Substance: ISOSORBIDE MONONITRATE
     Dates: start: 20130415, end: 20150630
  7. FLUITRAN [Concomitant]
     Active Substance: TRICHLORMETHIAZIDE
     Dates: start: 20130422, end: 20150630
  8. BAYASPIRIN [Concomitant]
     Active Substance: ASPIRIN
     Dates: start: 20130422, end: 20150630
  9. OMNIPAQUE [Suspect]
     Active Substance: IOHEXOL
     Indication: DIAGNOSTIC PROCEDURE
  10. ATELEC [Concomitant]
     Active Substance: CILNIDIPINE
     Dates: start: 20130415, end: 20150630
  11. LOXOPROFEN SODIUM [Concomitant]
     Active Substance: LOXOPROFEN SODIUM
     Dates: start: 20140930, end: 20150630

REACTIONS (2)
  - Multiple organ dysfunction syndrome [Fatal]
  - Shock [Recovered/Resolved]

NARRATIVE: CASE EVENT DATE: 20150630
